APPROVED DRUG PRODUCT: MEXILETINE HYDROCHLORIDE
Active Ingredient: MEXILETINE HYDROCHLORIDE
Strength: 250MG
Dosage Form/Route: CAPSULE;ORAL
Application: A214089 | Product #003 | TE Code: AB
Applicant: SENORES PHARMACEUTICALS INC
Approved: Oct 1, 2021 | RLD: No | RS: No | Type: RX